FAERS Safety Report 4416451-5 (Version None)
Quarter: 2004Q3

REPORT INFORMATION
  Report Type: 
  Country: None (occurrence: None)
  Receive Date: 20040802
  Receipt Date: 20040720
  Transmission Date: 20050211
  Serious: Yes (Death, Hospitalization)
  Sender: FDA-Public Use
  Company Number: JACFRA2000000558

PATIENT
  Age: 93 Year
  Sex: Male
  Weight: 75 kg

DRUGS (5)
  1. PROPULSID [Suspect]
     Dosage: ORAL
     Route: 048
     Dates: end: 20000529
  2. DIGOXIN [Suspect]
     Dosage: ORAL
     Route: 048
     Dates: end: 20000529
  3. ALDALIX (OSYROL-LASIX) [Suspect]
     Dosage: ORAL
     Route: 048
     Dates: end: 20000530
  4. CORDARONE [Concomitant]
  5. XATRAL (ALFUZOSIN) [Concomitant]

REACTIONS (7)
  - ATRIOVENTRICULAR BLOCK [None]
  - BLOOD POTASSIUM INCREASED [None]
  - BRADYCARDIA [None]
  - BRONCHITIS ACUTE [None]
  - CARDIOACTIVE DRUG LEVEL INCREASED [None]
  - TORSADE DE POINTES [None]
  - VENTRICULAR FIBRILLATION [None]
